FAERS Safety Report 6883070-0 (Version None)
Quarter: 2010Q3

REPORT INFORMATION
  Report Type: 
  Country: None (occurrence: None)
  Receive Date: 20100708
  Receipt Date: 20100219
  Transmission Date: 20110219
  Serious: Yes (Other)
  Sender: FDA-Public Use
  Company Number: 2010003878

PATIENT
  Age: 55 Year
  Sex: Male
  Weight: 93 kg

DRUGS (3)
  1. CHANTIX [Suspect]
     Dates: start: 20091102
  2. METFORMIN HCL [Concomitant]
  3. LIPITOR [Concomitant]

REACTIONS (2)
  - AGGRESSION [None]
  - VERBAL ABUSE [None]
